FAERS Safety Report 20160171 (Version 2)
Quarter: 2022Q1

REPORT INFORMATION
  Report Type: Report from Study
  Country: IT (occurrence: IT)
  Receive Date: 20211208
  Receipt Date: 20220125
  Transmission Date: 20220423
  Serious: Yes (Hospitalization, Other)
  Sender: FDA-Public Use
  Company Number: IT-NOVARTISPH-NVSC2021IT279602

PATIENT
  Age: 74 Year
  Sex: Male
  Weight: 75 kg

DRUGS (1)
  1. SIPONIMOD [Suspect]
     Active Substance: SIPONIMOD
     Indication: Multiple sclerosis
     Dosage: 2 MG, QD
     Route: 048
     Dates: start: 20211105, end: 20211110

REACTIONS (1)
  - Status epilepticus [Recovered/Resolved]

NARRATIVE: CASE EVENT DATE: 20211105
